FAERS Safety Report 14292272 (Version 4)
Quarter: 2018Q1

REPORT INFORMATION
  Report Type: Report from Study
  Country: NL (occurrence: NL)
  Receive Date: 20171215
  Receipt Date: 20180314
  Transmission Date: 20180509
  Serious: Yes (Death, Hospitalization)
  Sender: FDA-Public Use
  Company Number: NL-ASTRAZENECA-2017SF25884

PATIENT
  Age: 28310 Day
  Sex: Male

DRUGS (8)
  1. SUCRALFATE. [Concomitant]
     Active Substance: SUCRALFATE
     Dosage: 4 TIMES PER DAY
     Route: 065
     Dates: start: 20171020
  2. OMEPRAZOLE. [Concomitant]
     Active Substance: OMEPRAZOLE
     Indication: DYSPLASIA
     Route: 065
     Dates: start: 20171012
  3. PARACETAMOL [Concomitant]
     Active Substance: ACETAMINOPHEN
     Indication: DYSPLASIA
     Route: 065
     Dates: start: 20171012
  4. FENTANYL. [Concomitant]
     Active Substance: FENTANYL
     Indication: DYSPLASIA
     Route: 065
     Dates: start: 20171102
  5. DIFLUCAN [Concomitant]
     Active Substance: FLUCONAZOLE
     Indication: DYSPLASIA
     Route: 065
     Dates: start: 20171201
  6. OLAPARIB. [Suspect]
     Active Substance: OLAPARIB
     Indication: NON-SMALL CELL LUNG CANCER
     Route: 048
     Dates: start: 20171002, end: 20171102
  7. RADIOTHERAPY [Suspect]
     Active Substance: RADIATION THERAPY
     Indication: NON-SMALL CELL LUNG CANCER
     Dosage: 27.5GY, LOCAL DAILY
     Route: 065
     Dates: start: 20171002, end: 20171102
  8. OXYCODONE [Concomitant]
     Active Substance: OXYCODONE
     Indication: DYSPLASIA
     Route: 065
     Dates: start: 20171012

REACTIONS (4)
  - Oesophagitis [Not Recovered/Not Resolved]
  - Respiratory failure [Fatal]
  - Dyspnoea [Not Recovered/Not Resolved]
  - Pneumonitis [Fatal]

NARRATIVE: CASE EVENT DATE: 20171207
